FAERS Safety Report 6535506-2 (Version None)
Quarter: 2010Q1

REPORT INFORMATION
  Report Type: 
  Country: None (occurrence: None)
  Receive Date: 20100113
  Receipt Date: 20100108
  Transmission Date: 20100710
  Serious: Yes (Death, Life-Threatening)
  Sender: FDA-Public Use
  Company Number: JP-BRISTOL-MYERS SQUIBB COMPANY-14787600

PATIENT
  Age: 57 Year
  Sex: Male
  Weight: 59 kg

DRUGS (9)
  1. CETUXIMAB [Suspect]
     Indication: GASTROOESOPHAGEAL CANCER
     Dosage: DISCONTINUED ON 15-SEP-2009 MOST RECENT INFUSION ON:15-SEP-2009
     Route: 042
     Dates: start: 20090608, end: 20090915
  2. CISPLATIN [Suspect]
     Indication: GASTROOESOPHAGEAL CANCER
     Dosage: FREQ: DAY 1 OF CYCLE, DISCONTINUED ON 08-JUN-2009
     Route: 042
     Dates: start: 20090608, end: 20090608
  3. XELODA [Suspect]
     Indication: GASTROOESOPHAGEAL CANCER
     Dosage: CAPECITABINE TABS TAKEN ON DAY 1-15. RECENT INF: 15SEP2009
     Route: 048
     Dates: start: 20090608, end: 20090916
  4. TELMISARTAN [Concomitant]
     Route: 048
     Dates: start: 20070101, end: 20090728
  5. ATENOLOL [Concomitant]
     Dates: start: 20070101, end: 20090728
  6. MOSAPRIDE CITRATE [Concomitant]
     Indication: PROPHYLAXIS
     Dosage: MOSAPRIDE CITRATE HYDRATE
     Route: 048
     Dates: start: 20090401, end: 20090916
  7. REBAMIPIDE [Concomitant]
     Indication: PROPHYLAXIS
     Route: 048
     Dates: start: 20090401, end: 20090916
  8. LANSOPRAZOLE [Concomitant]
     Indication: PROPHYLAXIS
     Route: 048
     Dates: start: 20090401, end: 20090916
  9. SENNOSIDE [Concomitant]
     Route: 048
     Dates: start: 20090522, end: 20090901

REACTIONS (1)
  - ACUTE MYOCARDIAL INFARCTION [None]
